FAERS Safety Report 22042286 (Version 1)
Quarter: 2023Q1

REPORT INFORMATION
  Report Type: Spontaneous
  Country: US (occurrence: US)
  Receive Date: 20230227
  Receipt Date: 20230227
  Transmission Date: 20230417
  Serious: No
  Sender: FDA-Public Use
  Company Number: US-JNJFOC-20230239923

PATIENT
  Age: 71 Year
  Sex: Female
  Weight: 65.830 kg

DRUGS (3)
  1. TREMFYA [Suspect]
     Active Substance: GUSELKUMAB
     Indication: Psoriasis
     Route: 065
     Dates: start: 202208
  2. TREMFYA [Suspect]
     Active Substance: GUSELKUMAB
  3. TREMFYA [Suspect]
     Active Substance: GUSELKUMAB

REACTIONS (14)
  - Chest discomfort [Unknown]
  - Dyspnoea [Unknown]
  - Dizziness [Unknown]
  - Swelling face [Unknown]
  - Lip swelling [Unknown]
  - Oropharyngeal swelling [Unknown]
  - Mouth swelling [Unknown]
  - Illness [Unknown]
  - Muscle disorder [Unknown]
  - Weight decreased [Unknown]
  - Gastrointestinal disorder [Unknown]
  - Gastroenteritis viral [Unknown]
  - Headache [Unknown]
  - Respiratory disorder [Unknown]
